FAERS Safety Report 7892181-2 (Version None)
Quarter: 2011Q4

REPORT INFORMATION
  Report Type: 
  Country: None (occurrence: None)
  Receive Date: 20111104
  Receipt Date: 20110502
  Transmission Date: 20120403
  Serious: Yes (Death)
  Sender: FDA-Public Use
  Company Number: NL-ASTRAZENECA-1995AP12694

PATIENT
  Age: 6 Year
  Sex: Male
  Weight: 21 kg

DRUGS (8)
  1. METRONIDAZOLE [Concomitant]
  2. AMPICILLIN [Concomitant]
     Dates: start: 19950911, end: 19950914
  3. MIDAZOLAM [Concomitant]
     Dates: start: 19950916, end: 19950916
  4. ATROPINE [Concomitant]
  5. DIPRIVAN [Suspect]
     Dosage: 10      MG/KG/HR, MEAN DOSE 7.5
     Route: 042
     Dates: start: 19950913, end: 19950917
  6. CEFUROXIME [Concomitant]
     Indication: PNEUMONIA
     Dates: start: 19950914, end: 19950917
  7. ETOMIDATE [Concomitant]
  8. DIPRIVAN [Suspect]
     Indication: SEDATION
     Dosage: 10      MG/KG/HR, MEAN DOSE 7.5
     Route: 042
     Dates: start: 19950913, end: 19950917

REACTIONS (4)
  - HYPERTHERMIA MALIGNANT [None]
  - PROPOFOL INFUSION SYNDROME [None]
  - HYPERTHERMIA [None]
  - HYPERLIPIDAEMIA [None]
